FAERS Safety Report 26060032 (Version 1)
Quarter: 2025Q4

REPORT INFORMATION
  Report Type: Spontaneous
  Country: EU (occurrence: EU)
  Receive Date: 20251118
  Receipt Date: 20251118
  Transmission Date: 20260117
  Serious: Yes (Other)
  Sender: NOVARTIS
  Company Number: None

PATIENT
  Age: 57 Year
  Sex: Male
  Weight: 65 kg

DRUGS (6)
  1. MEKINIST [Suspect]
     Active Substance: TRAMETINIB DIMETHYL SULFOXIDE
     Indication: Metastatic malignant melanoma
     Dosage: UNK UNK, Q24H, (ONE TABLET DAILY (UNKNOWN DOSE)
     Route: 048
     Dates: start: 20250411, end: 20250524
  2. TAFINLAR [Suspect]
     Active Substance: DABRAFENIB MESYLATE
     Indication: Metastatic malignant melanoma
     Dosage: UNK UNK, Q12H, (TWO TABLETS TWICE DAILY (UNKNOWN DOSE)
     Route: 048
     Dates: start: 20250411, end: 20250524
  3. TAFINLAR [Suspect]
     Active Substance: DABRAFENIB MESYLATE
     Dosage: UNK UNK, Q12H, (ONE TABLET TWICE DAILY (UNKNOWN DOSE)
     Route: 048
     Dates: start: 20250716, end: 20250723
  4. TAFINLAR [Suspect]
     Active Substance: DABRAFENIB MESYLATE
     Dosage: UNK UNK, Q12H, (TWO TABLETS TWICE DAILY (UNKNOWN DOSE)
     Route: 048
     Dates: start: 20250723, end: 20250730
  5. DICLOFENAC [Concomitant]
     Active Substance: DICLOFENAC
     Indication: Product used for unknown indication
     Dosage: UNK
     Route: 065
  6. FAMOTIDINE [Concomitant]
     Active Substance: FAMOTIDINE
     Indication: Product used for unknown indication
     Dosage: 40 MG, Q24H
     Route: 065
     Dates: start: 20250530

REACTIONS (1)
  - Pancreatitis [Recovered/Resolved]

NARRATIVE: CASE EVENT DATE: 20250530
